FAERS Safety Report 9170860 (Version 1)
Quarter: 2013Q1

REPORT INFORMATION
  Report Type: Spontaneous
  Country: FR (occurrence: FR)
  Receive Date: 20130319
  Receipt Date: 20130319
  Transmission Date: 20140127
  Serious: Yes (Life-Threatening, Other)
  Sender: FDA-Public Use
  Company Number: FR-ROXANE LABORATORIES, INC.-2013-RO-00388RO

PATIENT
  Age: 20 Year
  Sex: Male

DRUGS (3)
  1. METHADONE [Suspect]
  2. CANNABIS [Suspect]
     Route: 055
  3. ALCOHOL [Suspect]
     Route: 048

REACTIONS (2)
  - Toxicity to various agents [Recovered/Resolved]
  - Non-cardiogenic pulmonary oedema [Recovered/Resolved]
